FAERS Safety Report 7978339-2 (Version None)
Quarter: 2011Q4

REPORT INFORMATION
  Report Type: 
  Country: None (occurrence: None)
  Receive Date: 20111206
  Receipt Date: 20111128
  Transmission Date: 20120403
  Serious: Yes (Hospitalization)
  Sender: FDA-Public Use
  Company Number: 2011SP055561

PATIENT
  Age: 74 Year
  Sex: Male

DRUGS (16)
  1. PANTOPRAZOLE SODIUM [Concomitant]
  2. SIMVASTATIN [Concomitant]
  3. VICTOZA [Concomitant]
  4. LEVOTHYROXINE SODIUM [Concomitant]
  5. ALLOPURINOL [Concomitant]
  6. EMSELEX [Concomitant]
  7. ASPIRIN [Concomitant]
  8. LANTUS [Concomitant]
  9. CITALOPRAM [Concomitant]
  10. FORMOTEROL FUMARATE [Concomitant]
  11. MOVIPREP [Concomitant]
  12. ENOXAPARIN SODIUM [Concomitant]
  13. DIOVAN [Concomitant]
  14. PLAVIX [Concomitant]
  15. MIRTAZAPINE [Suspect]
     Indication: PRODUCT USED FOR UNKNOWN INDICATION
     Dosage: 7.5 MG;PO
     Route: 048
     Dates: start: 20110504, end: 20110505
  16. TAMSULOSIN HCL [Concomitant]

REACTIONS (2)
  - ELECTROCARDIOGRAM QT PROLONGED [None]
  - BUNDLE BRANCH BLOCK RIGHT [None]
